FAERS Safety Report 10003866 (Version 1)
Quarter: 2014Q1

REPORT INFORMATION
  Report Type: Spontaneous
  Country: JP (occurrence: JP)
  Receive Date: 20140312
  Receipt Date: 20140312
  Transmission Date: 20141002
  Serious: Yes (Other)
  Sender: FDA-Public Use
  Company Number: JP-B.I. PHARMACEUTICALS,INC./RIDGEFIELD-2014-BI-10935YA

PATIENT
  Age: 86 Year
  Sex: Male

DRUGS (2)
  1. HARNAL D (TAMSULOSIN HYDROCHLORIDE) [Suspect]
     Indication: PRODUCT USED FOR UNKNOWN INDICATION
     Dosage: FORMULATION: ORODISPERSIBLE CR TABLET
     Route: 048
  2. DEPAKENE-R (VALPROATE SODIUM) [Concomitant]
     Indication: EPILEPSY
     Dosage: 400 MG
     Route: 065

REACTIONS (1)
  - Subdural haematoma [Unknown]
